FAERS Safety Report 5797579-4 (Version None)
Quarter: 2008Q3

REPORT INFORMATION
  Report Type: 
  Country: None (occurrence: None)
  Receive Date: 20080702
  Receipt Date: 20080324
  Transmission Date: 20090109
  Serious: No
  Sender: FDA-Public Use
  Company Number: US-BAYER-200817891NA

PATIENT
  Age: 50 Year
  Sex: Female
  Weight: 110 kg

DRUGS (2)
  1. MIRENA [Suspect]
     Indication: CONTRACEPTION
     Route: 015
     Dates: start: 20070701, end: 20080319
  2. MIRENA [Concomitant]
     Indication: DRUG USE FOR UNKNOWN INDICATION
     Route: 015

REACTIONS (3)
  - ENDOMETRIAL HYPERTROPHY [None]
  - PELVIC PAIN [None]
  - VAGINAL HAEMORRHAGE [None]
